FAERS Safety Report 23097897 (Version 1)
Quarter: 2023Q4

REPORT INFORMATION
  Report Type: Spontaneous
  Country: GB (occurrence: GB)
  Receive Date: 20231023
  Receipt Date: 20231023
  Transmission Date: 20240110
  Serious: Yes (Hospitalization)
  Sender: FDA-Public Use
  Company Number: None

PATIENT
  Age: 63 Year
  Sex: Male

DRUGS (17)
  1. RAMIPRIL [Suspect]
     Active Substance: RAMIPRIL
     Indication: Product used for unknown indication
     Dosage: 10 MILLIGRAM DAILY; UNIT DOSE: 10MG, FREQUENCY: ONCE DAILY
     Route: 065
  2. SPIRONOLACTONE [Suspect]
     Active Substance: SPIRONOLACTONE
     Indication: Product used for unknown indication
     Dosage: 25 MILLIGRAM DAILY; UNIT DOSE: 25MG, FREQUENCY: ONCE DAILY
     Route: 065
  3. INDAPAMIDE [Suspect]
     Active Substance: INDAPAMIDE
     Indication: Product used for unknown indication
     Dosage: 2.5 MILLIGRAM DAILY; EACH MORNING, UNIT DOSE: 2.5MG
     Route: 065
  4. METFORMIN [Suspect]
     Active Substance: METFORMIN HYDROCHLORIDE
     Indication: Product used for unknown indication
     Dosage: 2 GRAM DAILY; MODIFIED-RELEASE FILM-COATED TABLET, UNIT DOSE: 1G, FREQUENCY: TWICE DAILY
     Route: 065
  5. GENERICS UK PERINDOPRIL AND INDAPAMIDE [Concomitant]
     Indication: Product used for unknown indication
  6. INSULIN GLARGINE [Concomitant]
     Active Substance: INSULIN GLARGINE
     Indication: Product used for unknown indication
     Dosage: 1 DOSAGE FORMS DAILY; 100UNITS/ML 3ML PRE-FILLED PENS 24 UNITS. IN THE MORNING, UNIT DOSE: 1DF
  7. PIOGLITAZONE [Concomitant]
     Active Substance: PIOGLITAZONE
     Indication: Product used for unknown indication
     Dosage: 45 MILLIGRAM DAILY; UNIT DOSE: 45MG, FREQUENCY: ONCE DAILY
  8. ATORVASTATIN [Concomitant]
     Active Substance: ATORVASTATIN
     Indication: Product used for unknown indication
     Dosage: 40 MILLIGRAM DAILY; AT NIGHT. TOTAL DOSE 60MG, UNIT DOSE: 40MG
  9. ATORVASTATIN [Concomitant]
     Active Substance: ATORVASTATIN
     Dosage: 20 MILLIGRAM DAILY; TOTAL DOSE 60MG, UNIT DOSE: 20MG, FREQUENCY: ONCE DAILY
  10. CARBOMER [Concomitant]
     Active Substance: CARBOMER
     Indication: Product used for unknown indication
     Dosage: FOUR TIMES A DAY
     Route: 050
  11. BISOPROLOL [Concomitant]
     Active Substance: BISOPROLOL\BISOPROLOL FUMARATE
     Indication: Product used for unknown indication
     Dosage: 2.5 MILLIGRAM DAILY; UNIT DOSE: 2.5MG, FREQUENCY: ONCE DAILY
  12. ASPIRIN [Concomitant]
     Active Substance: ASPIRIN
     Indication: Product used for unknown indication
  13. LANSOPRAZOLE [Concomitant]
     Active Substance: LANSOPRAZOLE
     Indication: Product used for unknown indication
     Dosage: 60 MILLIGRAM DAILY; UNIT DOSE: 30MG, FREQUENCY: TWICE DAILY
  14. CLOBETASOL [Concomitant]
     Active Substance: CLOBETASOL
     Indication: Product used for unknown indication
     Dosage: APPLY THINLY ONCE OR TWICE A DAY
  15. RANOLAZINE [Concomitant]
     Active Substance: RANOLAZINE
     Indication: Product used for unknown indication
     Dosage: 750 MILLIGRAM DAILY; MODIFIED-RELEASE FILM-COATED TABLET, UNIT DOSE: 375MG, FREQUENCY: TWICE DAILY
  16. GABAPENTIN [Concomitant]
     Active Substance: GABAPENTIN
     Indication: Product used for unknown indication
     Dosage: 400 MILLIGRAM DAILY; UNIT DOSE: 200MG, FREQUENCY: TWICE DAILY
  17. DULOXETINE [Concomitant]
     Active Substance: DULOXETINE
     Indication: Product used for unknown indication
     Dosage: 60 MILLIGRAM DAILY; UNIT DOSE: 60MG, FREQUENCY: ONCE DAILY

REACTIONS (2)
  - Acute kidney injury [Recovered/Resolved]
  - Blood potassium increased [Unknown]
